FAERS Safety Report 20291791 (Version 1)
Quarter: 2022Q1

REPORT INFORMATION
  Report Type: Spontaneous
  Country: US (occurrence: None)
  Receive Date: 20220104
  Receipt Date: 20220104
  Transmission Date: 20220423
  Serious: No
  Sender: FDA-Public Use
  Company Number: None

PATIENT
  Age: 6 Month
  Sex: Female
  Weight: 7.4 kg

DRUGS (1)
  1. HEMANGEOL [Suspect]
     Active Substance: PROPRANOLOL HYDROCHLORIDE
     Indication: Haemangioma
     Dosage: OTHER QUANTITY : 2.8 ML FOR 7 DAYS;?
     Route: 048
     Dates: start: 20211215

REACTIONS (4)
  - Crying [None]
  - Insomnia [None]
  - Decreased appetite [None]
  - Abnormal behaviour [None]

NARRATIVE: CASE EVENT DATE: 20211227
